FAERS Safety Report 23080998 (Version 2)
Quarter: 2024Q1

REPORT INFORMATION
  Report Type: Spontaneous
  Country: US (occurrence: US)
  Receive Date: 20231018
  Receipt Date: 20240126
  Transmission Date: 20240410
  Serious: No
  Sender: FDA-Public Use
  Company Number: US-BRISTOL-MYERS SQUIBB COMPANY-2023-148020

PATIENT
  Age: 67 Year
  Sex: Female
  Weight: 35.83 kg

DRUGS (1)
  1. LENALIDOMIDE [Suspect]
     Active Substance: LENALIDOMIDE
     Indication: Plasma cell myeloma
     Dosage: FREQ: EVERY OTHER DAY
     Route: 048
     Dates: start: 20230226, end: 20240111

REACTIONS (2)
  - Protein total increased [Not Recovered/Not Resolved]
  - Off label use [Unknown]
